FAERS Safety Report 18919748 (Version 8)
Quarter: 2021Q1

REPORT INFORMATION
  Report Type: Report from Study
  Country: CA (occurrence: CA)
  Receive Date: 20210221
  Receipt Date: 20210304
  Transmission Date: 20210420
  Serious: Yes (Other)
  Sender: FDA-Public Use
  Company Number: CA-BIOGEN-2021BI00979380

PATIENT
  Age: 67 Year
  Sex: Female

DRUGS (3)
  1. FAMPYRA [Suspect]
     Active Substance: DALFAMPRIDINE
     Route: 048
     Dates: start: 20210224
  2. FAMPYRA [Suspect]
     Active Substance: DALFAMPRIDINE
     Indication: MULTIPLE SCLEROSIS
     Route: 048
     Dates: start: 20201214
  3. FAMPYRA [Suspect]
     Active Substance: DALFAMPRIDINE
     Route: 048
     Dates: start: 20201214, end: 20210214

REACTIONS (9)
  - Optic ischaemic neuropathy [Unknown]
  - Blindness [Unknown]
  - Gait disturbance [Unknown]
  - Asthenia [Unknown]
  - Visual impairment [Unknown]
  - Fatigue [Unknown]
  - Retinal artery occlusion [Unknown]
  - Optic neuritis [Unknown]
  - Retinal haemorrhage [Unknown]

NARRATIVE: CASE EVENT DATE: 202102
